FAERS Safety Report 5944321-X (Version None)
Quarter: 2008Q4

REPORT INFORMATION
  Report Type: 
  Country: None (occurrence: None)
  Receive Date: 20081105
  Receipt Date: 20081021
  Transmission Date: 20090506
  Serious: Yes (Other)
  Sender: FDA-Public Use
  Company Number: SPV1-2008-02272

PATIENT
  Age: 6 Year
  Sex: Male
  Weight: 27.2 kg

DRUGS (2)
  1. DAYTRANA [Suspect]
     Indication: ATTENTION DEFICIT/HYPERACTIVITY DISORDER
     Dosage: 20 MG, 1X/DAY:QD, TRANSDERMAL, 10 MG, 1X/DAY:QD, TRANSDERMAL
     Route: 062
     Dates: start: 20081018, end: 20081001
  2. DAYTRANA [Suspect]
     Indication: ATTENTION DEFICIT/HYPERACTIVITY DISORDER
     Dosage: 20 MG, 1X/DAY:QD, TRANSDERMAL, 10 MG, 1X/DAY:QD, TRANSDERMAL
     Route: 062
     Dates: start: 20081001

REACTIONS (4)
  - DRUG ADMINISTERED AT INAPPROPRIATE SITE [None]
  - DRUG EFFECT INCREASED [None]
  - IMPULSIVE BEHAVIOUR [None]
  - SUICIDE ATTEMPT [None]
